FAERS Safety Report 12750367 (Version 1)
Quarter: 2016Q3

REPORT INFORMATION
  Report Type: Spontaneous
  Country: US (occurrence: US)
  Receive Date: 20160916
  Receipt Date: 20160916
  Transmission Date: 20161109
  Serious: No
  Sender: FDA-Public Use
  Company Number: US-BAYER-2016-179930

PATIENT
  Age: 77 Year
  Sex: Female
  Weight: 69.38 kg

DRUGS (2)
  1. ALEVE PM [Suspect]
     Active Substance: DIPHENHYDRAMINE HYDROCHLORIDE\NAPROXEN SODIUM
     Indication: SLEEP DISORDER
     Dosage: 2 DF, PRN, DURATION OF ADMINISTRATION FEW WEEKS
     Route: 048
  2. ALEVE PM [Suspect]
     Active Substance: DIPHENHYDRAMINE HYDROCHLORIDE\NAPROXEN SODIUM
     Indication: SLEEP DISORDER
     Dosage: 2 DF, PRN
     Route: 048
     Dates: end: 20160913

REACTIONS (2)
  - Drug ineffective [Unknown]
  - Product use issue [Unknown]
